FAERS Safety Report 9444838 (Version 1)
Quarter: 2013Q3

REPORT INFORMATION
  Report Type: Spontaneous
  Country: US (occurrence: US)
  Receive Date: 20130807
  Receipt Date: 20130807
  Transmission Date: 20140515
  Serious: Yes (Hospitalization, Other)
  Sender: FDA-Public Use
  Company Number: US-BAXTER-2013BAX023763

PATIENT
  Age: 52 Year
  Sex: Male

DRUGS (1)
  1. DIANEAL LOW CALCIUM [Suspect]
     Indication: PERITONEAL DIALYSIS
     Dates: start: 201111

REACTIONS (5)
  - Arthropod bite [Recovered/Resolved]
  - Skin discolouration [Recovered/Resolved]
  - Infected bites [Recovered/Resolved]
  - Peritonitis [Recovered/Resolved]
  - Abdominal pain upper [Recovered/Resolved]
